FAERS Safety Report 22933238 (Version 3)
Quarter: 2024Q2

REPORT INFORMATION
  Report Type: Report from Study
  Country: GB (occurrence: GB)
  Receive Date: 20230912
  Receipt Date: 20240508
  Transmission Date: 20240716
  Serious: Yes (Hospitalization, Other)
  Sender: FDA-Public Use
  Company Number: GB-SA-SAC20230818001484

PATIENT

DRUGS (213)
  1. DEXAMETHASONE [Suspect]
     Active Substance: DEXAMETHASONE
     Indication: Plasma cell myeloma refractory
     Dosage: 10 MG, 1X; IN TOTAL
     Route: 065
     Dates: start: 20230524, end: 20230524
  2. DEXAMETHASONE [Suspect]
     Active Substance: DEXAMETHASONE
     Dosage: 10 MG, 1 DOSAGE TOTAL
     Route: 065
     Dates: start: 20221012, end: 20221012
  3. DEXAMETHASONE [Suspect]
     Active Substance: DEXAMETHASONE
     Dosage: 10 MG, QD
     Route: 065
     Dates: start: 20220116, end: 20220116
  4. DEXAMETHASONE [Suspect]
     Active Substance: DEXAMETHASONE
     Dosage: 10 MG, QD
     Route: 065
     Dates: start: 20230320, end: 20230320
  5. DEXAMETHASONE [Suspect]
     Active Substance: DEXAMETHASONE
     Dosage: 10 MG, QD
     Route: 065
     Dates: start: 20230419, end: 20230419
  6. DEXAMETHASONE [Suspect]
     Active Substance: DEXAMETHASONE
     Dosage: 10 MG, QD
     Route: 065
     Dates: start: 20230206, end: 20230206
  7. DEXAMETHASONE [Suspect]
     Active Substance: DEXAMETHASONE
     Dosage: 10 MG, D22;
     Route: 065
     Dates: start: 20230103, end: 20230103
  8. DEXAMETHASONE [Suspect]
     Active Substance: DEXAMETHASONE
     Dosage: 10 MG, QD
     Route: 065
     Dates: start: 20230412, end: 20230412
  9. DEXAMETHASONE [Suspect]
     Active Substance: DEXAMETHASONE
     Dosage: 10 MG, QD
     Route: 065
     Dates: start: 20221227, end: 20221227
  10. DEXAMETHASONE [Suspect]
     Active Substance: DEXAMETHASONE
     Dosage: 10 MG, QD
     Route: 065
     Dates: start: 20230116, end: 20230116
  11. DEXAMETHASONE [Suspect]
     Active Substance: DEXAMETHASONE
     Dosage: 10 MG, D8;
     Route: 065
     Dates: start: 20230213, end: 20230213
  12. DEXAMETHASONE [Suspect]
     Active Substance: DEXAMETHASONE
     Dosage: 10 MG, QD
     Route: 065
     Dates: start: 20230313, end: 20230313
  13. DEXAMETHASONE [Suspect]
     Active Substance: DEXAMETHASONE
     Dosage: 10 MG, 1 DOSAGE TOTAL
     Route: 065
     Dates: start: 20221122, end: 20221122
  14. DEXAMETHASONE [Suspect]
     Active Substance: DEXAMETHASONE
     Dosage: 10 MG, QD
     Route: 065
     Dates: start: 20230327, end: 20230418
  15. DEXAMETHASONE [Suspect]
     Active Substance: DEXAMETHASONE
     Dosage: 10 MG, QD
     Route: 065
     Dates: start: 20230306, end: 20230306
  16. DEXAMETHASONE [Suspect]
     Active Substance: DEXAMETHASONE
     Dosage: 10 MG, QW
     Route: 065
     Dates: start: 20230621, end: 20230712
  17. DEXAMETHASONE [Suspect]
     Active Substance: DEXAMETHASONE
     Dosage: 10 MG, 1X; IN TOTAL
     Route: 065
     Dates: start: 20230614, end: 20230614
  18. ISATUXIMAB [Suspect]
     Active Substance: ISATUXIMAB
     Indication: Plasma cell myeloma refractory
     Dosage: 800 MG, QD
     Route: 065
     Dates: start: 20221227, end: 20221227
  19. ISATUXIMAB [Suspect]
     Active Substance: ISATUXIMAB
     Dosage: 800 MG, QD
     Route: 065
     Dates: start: 20221012, end: 20221012
  20. ISATUXIMAB [Suspect]
     Active Substance: ISATUXIMAB
     Dosage: 800 MG, 1X; IN TOTAL
     Route: 065
     Dates: start: 20230726, end: 20230726
  21. ISATUXIMAB [Suspect]
     Active Substance: ISATUXIMAB
     Dosage: 800 MG, QD
     Route: 065
     Dates: start: 20221213, end: 20221213
  22. ISATUXIMAB [Suspect]
     Active Substance: ISATUXIMAB
     Dosage: 800 MG, QD
     Route: 065
     Dates: start: 20230320, end: 20230320
  23. ISATUXIMAB [Suspect]
     Active Substance: ISATUXIMAB
     Dosage: 800 MG, 1X; IN TOTAL
     Route: 065
     Dates: start: 20230607, end: 20230607
  24. ISATUXIMAB [Suspect]
     Active Substance: ISATUXIMAB
     Dosage: 800 MG, 1X; IN TOTAL
     Route: 065
     Dates: start: 20230524, end: 20230524
  25. ISATUXIMAB [Suspect]
     Active Substance: ISATUXIMAB
     Dosage: 800 MG, QD
     Route: 065
     Dates: start: 20230306, end: 20230306
  26. ISATUXIMAB [Suspect]
     Active Substance: ISATUXIMAB
     Dosage: 800 MG, QD
     Route: 065
     Dates: start: 20221115, end: 20221115
  27. ISATUXIMAB [Suspect]
     Active Substance: ISATUXIMAB
     Dosage: 800 MG, TWICE PER CYCLE
     Route: 065
     Dates: start: 20230621, end: 20230705
  28. ISATUXIMAB [Suspect]
     Active Substance: ISATUXIMAB
     Dosage: 800 MG, 2 DOSE WEEKLY
     Route: 065
     Dates: start: 20230412, end: 20230412
  29. ISATUXIMAB [Suspect]
     Active Substance: ISATUXIMAB
     Dosage: 800 MG, QD
     Route: 065
     Dates: start: 20230206, end: 20230206
  30. ISATUXIMAB [Suspect]
     Active Substance: ISATUXIMAB
     Dosage: 800 MG, QD
     Route: 065
     Dates: start: 20221102, end: 20221102
  31. ISATUXIMAB [Suspect]
     Active Substance: ISATUXIMAB
     Dosage: 800 MG, 1X; IN TOTAL
     Route: 065
     Dates: start: 20230823, end: 20230823
  32. ISATUXIMAB [Suspect]
     Active Substance: ISATUXIMAB
     Dosage: 800 MG, 1X; IN TOTAL
     Route: 065
     Dates: start: 20230906, end: 20230906
  33. ISATUXIMAB [Suspect]
     Active Substance: ISATUXIMAB
     Dosage: 800 MG, 1 DOSE WEEKLY
     Route: 065
     Dates: start: 20221019, end: 20221019
  34. ISATUXIMAB [Suspect]
     Active Substance: ISATUXIMAB
     Dosage: 800 MG, QD
     Route: 065
     Dates: start: 20221026, end: 20221026
  35. ISATUXIMAB [Suspect]
     Active Substance: ISATUXIMAB
     Dosage: 800 MG, BIW
     Route: 065
     Dates: start: 20230206, end: 20230206
  36. ISATUXIMAB [Suspect]
     Active Substance: ISATUXIMAB
     Dosage: 800 MG, BIW
     Route: 065
     Dates: start: 20221227, end: 20221227
  37. ISATUXIMAB [Suspect]
     Active Substance: ISATUXIMAB
     Dosage: 800 MG, QW
     Route: 065
     Dates: start: 20221012, end: 20221012
  38. ISATUXIMAB [Suspect]
     Active Substance: ISATUXIMAB
     Dosage: 800 MG, BIW
     Route: 065
     Dates: start: 20221227, end: 20221227
  39. ISATUXIMAB [Suspect]
     Active Substance: ISATUXIMAB
     Dosage: 800 MG, QW
     Route: 065
     Dates: start: 20221012, end: 20221012
  40. ISATUXIMAB [Suspect]
     Active Substance: ISATUXIMAB
     Dosage: 800 MG, BIW
     Route: 065
     Dates: start: 20221213, end: 20221213
  41. ISATUXIMAB [Suspect]
     Active Substance: ISATUXIMAB
     Dosage: 800 MG, BIW
     Route: 065
     Dates: start: 20221115, end: 20221115
  42. ISATUXIMAB [Suspect]
     Active Substance: ISATUXIMAB
     Dosage: 800 MG, QW
     Route: 065
     Dates: start: 20221102, end: 20221102
  43. ISATUXIMAB [Suspect]
     Active Substance: ISATUXIMAB
     Dosage: 800 MG, BIW
     Route: 065
     Dates: start: 20230320, end: 20230320
  44. ISATUXIMAB [Suspect]
     Active Substance: ISATUXIMAB
     Dosage: 800 MG, BIW
     Route: 065
     Dates: start: 20230306, end: 20230306
  45. POMALIDOMIDE [Suspect]
     Active Substance: POMALIDOMIDE
     Indication: Plasma cell myeloma refractory
     Dosage: 2 MG, QD
     Route: 065
     Dates: start: 20230109, end: 20230130
  46. POMALIDOMIDE [Suspect]
     Active Substance: POMALIDOMIDE
     Dosage: 2 MG, QD
     Route: 065
     Dates: start: 20230412, end: 20230503
  47. POMALIDOMIDE [Suspect]
     Active Substance: POMALIDOMIDE
     Dosage: 3 MG, QD
     Route: 065
     Dates: start: 20221012, end: 20221102
  48. POMALIDOMIDE [Suspect]
     Active Substance: POMALIDOMIDE
     Dosage: 3 MG, QD
     Route: 065
     Dates: start: 20221213, end: 20230109
  49. POMALIDOMIDE [Suspect]
     Active Substance: POMALIDOMIDE
     Dosage: 2 MG, QD
     Route: 065
     Dates: start: 20230306, end: 20230327
  50. POMALIDOMIDE [Suspect]
     Active Substance: POMALIDOMIDE
     Dosage: 2 MG;
     Route: 065
     Dates: start: 20230524, end: 20230621
  51. POMALIDOMIDE [Suspect]
     Active Substance: POMALIDOMIDE
     Dosage: 2 MG, QD
     Route: 065
     Dates: start: 20230206, end: 20230227
  52. POMALIDOMIDE [Suspect]
     Active Substance: POMALIDOMIDE
     Dosage: 2 MG, QD
     Route: 065
     Dates: start: 20230712, end: 20230802
  53. ACYCLOVIR [Concomitant]
     Active Substance: ACYCLOVIR
     Indication: Antiviral prophylaxis
     Dosage: UNK; ;
     Route: 065
     Dates: start: 2020
  54. ACYCLOVIR [Concomitant]
     Active Substance: ACYCLOVIR
     Indication: Cardiac failure
  55. CALCIUM CARBONATE\CHOLECALCIFEROL [Concomitant]
     Active Substance: CALCIUM CARBONATE\CHOLECALCIFEROL
     Indication: Prophylaxis
     Dosage: UNK; ;
     Route: 065
     Dates: start: 2023
  56. CALCIUM CARBONATE\CHOLECALCIFEROL [Concomitant]
     Active Substance: CALCIUM CARBONATE\CHOLECALCIFEROL
     Indication: Osteoarthritis
     Dosage: 1 DF, QD
     Route: 065
     Dates: start: 20230503
  57. CALCIUM CARBONATE\CHOLECALCIFEROL [Concomitant]
     Active Substance: CALCIUM CARBONATE\CHOLECALCIFEROL
     Dosage: UNK; ;
     Route: 065
     Dates: start: 2020
  58. ALLOPURINOL [Concomitant]
     Active Substance: ALLOPURINOL
     Indication: Prophylaxis
     Dosage: UNK; ;
     Route: 065
     Dates: start: 2020
  59. ALLOPURINOL [Concomitant]
     Active Substance: ALLOPURINOL
     Indication: Chronic kidney disease
  60. BISOPROLOL [Concomitant]
     Active Substance: BISOPROLOL\BISOPROLOL FUMARATE
     Indication: Cardiac failure
     Dosage: UNK; ;
     Route: 065
     Dates: start: 2020
  61. BUMETANIDE [Concomitant]
     Active Substance: BUMETANIDE
     Indication: Cardiac failure
     Dosage: UNK; ;
     Route: 065
     Dates: start: 20221213
  62. BUMETANIDE [Concomitant]
     Active Substance: BUMETANIDE
     Dosage: UNK; ;
     Route: 065
     Dates: start: 2020
  63. CHLORPHENIRAMINE MALEATE [Concomitant]
     Active Substance: CHLORPHENIRAMINE MALEATE
     Indication: Supportive care
     Dosage: 4 MG, 1X; IN TOTAL
     Route: 065
     Dates: start: 20230726, end: 20230726
  64. CHLORPHENIRAMINE MALEATE [Concomitant]
     Active Substance: CHLORPHENIRAMINE MALEATE
     Dosage: 4 MG, CYCLICAL
     Route: 065
     Dates: start: 20221213, end: 20221213
  65. CHLORPHENIRAMINE MALEATE [Concomitant]
     Active Substance: CHLORPHENIRAMINE MALEATE
     Dosage: 4 MG, CYCLICAL
     Route: 065
     Dates: start: 20221012, end: 20221012
  66. CHLORPHENIRAMINE MALEATE [Concomitant]
     Active Substance: CHLORPHENIRAMINE MALEATE
     Dosage: 4 MG, QD, QCY
     Route: 065
     Dates: start: 20230206, end: 20230206
  67. CHLORPHENIRAMINE MALEATE [Concomitant]
     Active Substance: CHLORPHENIRAMINE MALEATE
     Dosage: 4 MG, QD
     Route: 065
     Dates: start: 20230412, end: 20230412
  68. CHLORPHENIRAMINE MALEATE [Concomitant]
     Active Substance: CHLORPHENIRAMINE MALEATE
     Dosage: 4 MG, QD
     Route: 065
     Dates: start: 20230306, end: 20230306
  69. CHLORPHENIRAMINE MALEATE [Concomitant]
     Active Substance: CHLORPHENIRAMINE MALEATE
     Dosage: 4 MG, 1X; IN TOTAL
     Route: 065
     Dates: start: 20230607, end: 20230607
  70. CHLORPHENIRAMINE MALEATE [Concomitant]
     Active Substance: CHLORPHENIRAMINE MALEATE
     Dosage: 4 MG, QD
     Route: 065
     Dates: start: 20230320, end: 20230320
  71. CHLORPHENIRAMINE MALEATE [Concomitant]
     Active Substance: CHLORPHENIRAMINE MALEATE
     Dosage: 4 MG, CYCLICAL
     Route: 065
     Dates: start: 20221115, end: 20221115
  72. CHLORPHENIRAMINE MALEATE [Concomitant]
     Active Substance: CHLORPHENIRAMINE MALEATE
     Dosage: 4 MG, QD
     Route: 065
     Dates: start: 20221227, end: 20221227
  73. CHLORPHENIRAMINE MALEATE [Concomitant]
     Active Substance: CHLORPHENIRAMINE MALEATE
     Dosage: 4 MG,TO BE GIVEN 15-60 MINUTES ISATUXIAB;
     Route: 065
     Dates: start: 20230109, end: 20230109
  74. CHLORPHENIRAMINE MALEATE [Concomitant]
     Active Substance: CHLORPHENIRAMINE MALEATE
     Dosage: 4 MG, 1X; IN TOTAL
     Route: 065
     Dates: start: 20230524, end: 20230524
  75. CHLORPHENIRAMINE MALEATE [Concomitant]
     Active Substance: CHLORPHENIRAMINE MALEATE
     Dosage: CYCLICAL
     Route: 065
     Dates: start: 20221026, end: 20221026
  76. CHLORPHENIRAMINE MALEATE [Concomitant]
     Active Substance: CHLORPHENIRAMINE MALEATE
     Dosage: UNK UNK, QCY; CYCLICAL
     Route: 065
     Dates: start: 20230705, end: 20230705
  77. CHLORPHENIRAMINE MALEATE [Concomitant]
     Active Substance: CHLORPHENIRAMINE MALEATE
     Dosage: UNK UNK, QCY; CYCLICAL ;
     Route: 065
     Dates: start: 20230220, end: 20230220
  78. CHLORPHENIRAMINE MALEATE [Concomitant]
     Active Substance: CHLORPHENIRAMINE MALEATE
     Dosage: UNK UNK, QCY; CYCLICAL ;
     Route: 065
     Dates: start: 20230320, end: 20230320
  79. CHLORPHENIRAMINE MALEATE [Concomitant]
     Active Substance: CHLORPHENIRAMINE MALEATE
     Dosage: UNK UNK, QCY; CYCLICAL ;
     Route: 065
     Dates: start: 20230306, end: 20230306
  80. CHLORPHENIRAMINE MALEATE [Concomitant]
     Active Substance: CHLORPHENIRAMINE MALEATE
     Dosage: UNK UNK, QCY; CYCLICAL ;
     Route: 065
     Dates: start: 20230726, end: 20230726
  81. CHLORPHENIRAMINE MALEATE [Concomitant]
     Active Substance: CHLORPHENIRAMINE MALEATE
     Dosage: UNK
     Route: 065
     Dates: start: 20230621, end: 20230621
  82. CHLORPHENIRAMINE MALEATE [Concomitant]
     Active Substance: CHLORPHENIRAMINE MALEATE
     Dosage: 4 MG, QD, EVERY CYCLE
     Route: 065
     Dates: start: 20221213, end: 20221213
  83. CHLORPHENIRAMINE MALEATE [Concomitant]
     Active Substance: CHLORPHENIRAMINE MALEATE
     Dosage: UNK UNK, QCY; CYCLICAL ;
     Route: 065
     Dates: start: 20230123, end: 20230123
  84. CHLORPHENIRAMINE MALEATE [Concomitant]
     Active Substance: CHLORPHENIRAMINE MALEATE
     Dosage: CYCLICAL
     Route: 065
     Dates: start: 20221102, end: 20221102
  85. CHLORPHENIRAMINE MALEATE [Concomitant]
     Active Substance: CHLORPHENIRAMINE MALEATE
     Dosage: UNK UNK, QCY; CYCLICAL ;
     Route: 065
     Dates: start: 20230510, end: 20230510
  86. CHLORPHENIRAMINE MALEATE [Concomitant]
     Active Substance: CHLORPHENIRAMINE MALEATE
     Dosage: UNK UNK, QCY; CYCLICAL ;
     Route: 065
     Dates: start: 20230524, end: 20230524
  87. CHLORPHENIRAMINE MALEATE [Concomitant]
     Active Substance: CHLORPHENIRAMINE MALEATE
     Dosage: UNK UNK, QCY; CYCLICAL ;
     Route: 065
     Dates: start: 20230412, end: 20230412
  88. CHLORPHENIRAMINE MALEATE [Concomitant]
     Active Substance: CHLORPHENIRAMINE MALEATE
     Dosage: 4 MG, QCY; CYCLICAL
     Route: 065
     Dates: start: 20221115, end: 20221115
  89. CHLORPHENIRAMINE MALEATE [Concomitant]
     Active Substance: CHLORPHENIRAMINE MALEATE
     Dosage: 4 MG
     Route: 065
     Dates: start: 20230607, end: 20230607
  90. CHLORPHENIRAMINE MALEATE [Concomitant]
     Active Substance: CHLORPHENIRAMINE MALEATE
     Dosage: UNK
     Route: 065
     Dates: start: 20221227, end: 20221227
  91. CHLORPHENIRAMINE MALEATE [Concomitant]
     Active Substance: CHLORPHENIRAMINE MALEATE
     Dosage: 10 MG, CYCLICAL
     Route: 065
     Dates: start: 20221019, end: 20221019
  92. CIPROFLOXACIN [Concomitant]
     Active Substance: CIPROFLOXACIN
     Indication: Prophylaxis
     Dosage: UNK; ;
     Route: 065
     Dates: start: 20230306, end: 20230307
  93. COTRIMOXAZOLE [Concomitant]
     Active Substance: SULFAMETHOXAZOLE\TRIMETHOPRIM
     Indication: Antifungal prophylaxis
     Dosage: 960 MG, MON/WED/FRI;
     Route: 065
     Dates: start: 20230109, end: 20230109
  94. COTRIMOXAZOLE [Concomitant]
     Active Substance: SULFAMETHOXAZOLE\TRIMETHOPRIM
     Indication: Antifungal prophylaxis
     Dosage: 960 MG, MON/WED/FRI 28 DAYS;
     Route: 065
     Dates: start: 20230621, end: 20230719
  95. COTRIMOXAZOLE [Concomitant]
     Active Substance: SULFAMETHOXAZOLE\TRIMETHOPRIM
     Dosage: 960 MG, MON/WED/FRI;
     Route: 065
     Dates: start: 20230412, end: 20230510
  96. COTRIMOXAZOLE [Concomitant]
     Active Substance: SULFAMETHOXAZOLE\TRIMETHOPRIM
     Dosage: UNK; ;
     Route: 065
     Dates: start: 2020
  97. COTRIMOXAZOLE [Concomitant]
     Active Substance: SULFAMETHOXAZOLE\TRIMETHOPRIM
     Dosage: UNK; ;
     Route: 065
     Dates: start: 202303, end: 20230307
  98. COTRIMOXAZOLE [Concomitant]
     Active Substance: SULFAMETHOXAZOLE\TRIMETHOPRIM
     Dosage: 960 MG, MON/WED/FRI 28 DAYS;
     Route: 065
     Dates: start: 20230524
  99. COTRIMOXAZOLE [Concomitant]
     Active Substance: SULFAMETHOXAZOLE\TRIMETHOPRIM
     Dosage: 960 MG, CYCLICAL (MON/WED/FRI)
     Route: 065
     Dates: start: 20221012, end: 20221109
  100. COTRIMOXAZOLE [Concomitant]
     Active Substance: SULFAMETHOXAZOLE\TRIMETHOPRIM
     Dosage: 960 MG, MON/WED/FRI;
     Route: 065
     Dates: start: 20221115, end: 20221115
  101. COTRIMOXAZOLE [Concomitant]
     Active Substance: SULFAMETHOXAZOLE\TRIMETHOPRIM
     Dosage: 960 MG, MON/WED/FRI;
     Route: 065
     Dates: start: 20230726
  102. COTRIMOXAZOLE [Concomitant]
     Active Substance: SULFAMETHOXAZOLE\TRIMETHOPRIM
     Dosage: 960 MG, MON/WED/FRI;
     Route: 065
     Dates: start: 20230206, end: 20230306
  103. COTRIMOXAZOLE [Concomitant]
     Active Substance: SULFAMETHOXAZOLE\TRIMETHOPRIM
     Dosage: 960 MG, QD
     Route: 065
     Dates: start: 20230306, end: 20230403
  104. COTRIMOXAZOLE [Concomitant]
     Active Substance: SULFAMETHOXAZOLE\TRIMETHOPRIM
     Dosage: UNK UNK, QCY; CYCLICAL ;
     Route: 065
     Dates: start: 20230412, end: 20230523
  105. COTRIMOXAZOLE [Concomitant]
     Active Substance: SULFAMETHOXAZOLE\TRIMETHOPRIM
     Dosage: 960 MG CYCLICAL
     Route: 065
     Dates: start: 20221213, end: 20221213
  106. COTRIMOXAZOLE [Concomitant]
     Active Substance: SULFAMETHOXAZOLE\TRIMETHOPRIM
     Dosage: UNK; ;
     Route: 065
     Dates: start: 20230109, end: 20230205
  107. COTRIMOXAZOLE [Concomitant]
     Active Substance: SULFAMETHOXAZOLE\TRIMETHOPRIM
     Dosage: 2880 MG, 1 DOSE WEEKLY
     Route: 065
     Dates: start: 20221115, end: 20221212
  108. COTRIMOXAZOLE [Concomitant]
     Active Substance: SULFAMETHOXAZOLE\TRIMETHOPRIM
     Dosage: UNK; ;
     Route: 065
     Dates: start: 20230206, end: 20230305
  109. COTRIMOXAZOLE [Concomitant]
     Active Substance: SULFAMETHOXAZOLE\TRIMETHOPRIM
     Dosage: UNK UNK, QCY; CYCLICAL ;
     Route: 065
     Dates: start: 20230524, end: 20230620
  110. COTRIMOXAZOLE [Concomitant]
     Active Substance: SULFAMETHOXAZOLE\TRIMETHOPRIM
     Dosage: UNK UNK, QCY; ;
     Route: 065
     Dates: start: 20230621, end: 20230718
  111. COTRIMOXAZOLE [Concomitant]
     Active Substance: SULFAMETHOXAZOLE\TRIMETHOPRIM
     Dosage: UNK UNK, QCY; ;
     Route: 065
     Dates: start: 20230726, end: 20230822
  112. FILGRASTIM [Concomitant]
     Active Substance: FILGRASTIM
     Indication: Prophylaxis
     Dosage: 300 MG, BIW
     Route: 065
     Dates: start: 20230726
  113. FILGRASTIM [Concomitant]
     Active Substance: FILGRASTIM
     Dosage: 300 MG/M2, BIW
     Route: 065
     Dates: start: 20230306, end: 20230306
  114. FILGRASTIM [Concomitant]
     Active Substance: FILGRASTIM
     Dosage: 300 UG, QW
     Route: 065
     Dates: start: 20221010, end: 20221109
  115. FILGRASTIM [Concomitant]
     Active Substance: FILGRASTIM
     Dosage: 300 UG, BIW
     Route: 065
     Dates: start: 20221213, end: 20230110
  116. FILGRASTIM [Concomitant]
     Active Substance: FILGRASTIM
     Dosage: 300 UG, BIW
     Route: 065
     Dates: start: 20230109, end: 20230109
  117. FILGRASTIM [Concomitant]
     Active Substance: FILGRASTIM
     Dosage: 300 UG, BIW
     Route: 065
     Dates: start: 20221115, end: 20221213
  118. FILGRASTIM [Concomitant]
     Active Substance: FILGRASTIM
     Dosage: 300 MG/M2, BIW
     Route: 065
     Dates: start: 20230412, end: 20230412
  119. FILGRASTIM [Concomitant]
     Active Substance: FILGRASTIM
     Dosage: 300 MG, BIW
     Route: 065
     Dates: start: 20230524
  120. FILGRASTIM [Concomitant]
     Active Substance: FILGRASTIM
     Dosage: 300 MG, BIW
     Route: 065
     Dates: start: 20230621, end: 20230719
  121. FILGRASTIM [Concomitant]
     Active Substance: FILGRASTIM
     Dosage: 300 UG, BIW
     Route: 065
     Dates: start: 20230206, end: 20230221
  122. FILGRASTIM [Concomitant]
     Active Substance: FILGRASTIM
     Dosage: UNK UNK, 1 DOSE WEEKLY
     Route: 065
     Dates: start: 20221012
  123. FILGRASTIM [Concomitant]
     Active Substance: FILGRASTIM
     Dosage: 300 ?G, 2 DOSE WEEKLY
     Route: 065
     Dates: start: 20221213, end: 20221213
  124. FILGRASTIM [Concomitant]
     Active Substance: FILGRASTIM
     Dosage: UNK UNK, QCY; ;
     Route: 065
     Dates: start: 20230524, end: 20230620
  125. FILGRASTIM [Concomitant]
     Active Substance: FILGRASTIM
     Dosage: 300 UG, BIW
     Route: 065
     Dates: start: 20230206, end: 20230305
  126. FILGRASTIM [Concomitant]
     Active Substance: FILGRASTIM
     Dosage: UNK UNK, QCY; CYCLICAL ;
     Route: 065
     Dates: start: 20230306, end: 20230402
  127. FILGRASTIM [Concomitant]
     Active Substance: FILGRASTIM
     Dosage: UNK UNK, QCY; CYCLICAL ;
     Route: 065
     Dates: start: 20221012, end: 20221109
  128. FILGRASTIM [Concomitant]
     Active Substance: FILGRASTIM
     Dosage: UNK; ;
     Route: 065
     Dates: start: 20230621, end: 20230718
  129. FILGRASTIM [Concomitant]
     Active Substance: FILGRASTIM
     Dosage: UNK; ;
     Route: 065
     Dates: start: 20230109, end: 20230205
  130. FILGRASTIM [Concomitant]
     Active Substance: FILGRASTIM
     Dosage: UNK UNK, QCY; CYCLICAL ;
     Route: 065
     Dates: start: 20221115, end: 20221212
  131. FILGRASTIM [Concomitant]
     Active Substance: FILGRASTIM
     Dosage: UNK UNK, QCY; ;
     Route: 065
     Dates: start: 20230412
  132. FINASTERIDE [Concomitant]
     Active Substance: FINASTERIDE
     Indication: Benign prostatic hyperplasia
     Dosage: UNK; ;
     Route: 065
     Dates: start: 2018
  133. FINASTERIDE [Concomitant]
     Active Substance: FINASTERIDE
     Indication: Benign prostatic hyperplasia
  134. FLUCONAZOLE [Concomitant]
     Active Substance: FLUCONAZOLE
     Indication: Infection prophylaxis
     Dosage: UNK; ;
     Route: 065
     Dates: start: 2020
  135. HYDRALAZINE [Concomitant]
     Active Substance: HYDRALAZINE HYDROCHLORIDE
     Indication: Cardiac failure
     Dosage: UNK; ;
     Route: 065
     Dates: start: 2020
  136. HYDRALAZINE [Concomitant]
     Active Substance: HYDRALAZINE HYDROCHLORIDE
     Dosage: UNK; ;
     Route: 065
     Dates: start: 20230418, end: 20230419
  137. ISOSORBIDE MONONITRATE [Concomitant]
     Active Substance: ISOSORBIDE MONONITRATE
     Indication: Product used for unknown indication
     Dosage: UNK; ;
     Route: 065
     Dates: start: 2020
  138. LANSOPRAZOLE [Concomitant]
     Active Substance: LANSOPRAZOLE
     Indication: Prophylaxis
     Dosage: UNK; ;
     Route: 065
     Dates: start: 2023
  139. LANSOPRAZOLE [Concomitant]
     Active Substance: LANSOPRAZOLE
     Indication: Gastrointestinal disorder prophylaxis
     Dosage: UNK; ;
     Route: 065
     Dates: start: 2020
  140. MONTELUKAST [Concomitant]
     Active Substance: MONTELUKAST SODIUM
     Indication: Supportive care
     Dosage: 10 MG CYCLICAL
     Route: 065
     Dates: start: 20221012, end: 20221012
  141. MONTELUKAST [Concomitant]
     Active Substance: MONTELUKAST SODIUM
     Dosage: 10 MG CYCLICAL
     Route: 065
     Dates: start: 20221102, end: 20221102
  142. MONTELUKAST [Concomitant]
     Active Substance: MONTELUKAST SODIUM
     Dosage: 10 MG CYCLICAL
     Route: 065
     Dates: start: 20221026, end: 20221026
  143. MONTELUKAST [Concomitant]
     Active Substance: MONTELUKAST SODIUM
     Dosage: 10 MG CYCLICAL
     Route: 065
     Dates: start: 20221019, end: 20221019
  144. ONDANSETRON [Concomitant]
     Active Substance: ONDANSETRON
     Indication: Prophylaxis
     Dosage: UNK, CYCLIC; ;
     Route: 065
     Dates: start: 2020
  145. PAMIDRONATE [Concomitant]
     Active Substance: PAMIDRONATE DISODIUM
     Indication: Product used for unknown indication
     Dosage: 30 MG, QD
     Route: 065
     Dates: start: 20230503, end: 20230503
  146. PAMIDRONATE [Concomitant]
     Active Substance: PAMIDRONATE DISODIUM
     Dosage: UNK
     Route: 065
     Dates: start: 20220823
  147. ACETAMINOPHEN [Concomitant]
     Active Substance: ACETAMINOPHEN
     Indication: Prophylaxis
     Dosage: 1000 MG, QD
     Route: 065
     Dates: start: 20230206, end: 20230206
  148. ACETAMINOPHEN [Concomitant]
     Active Substance: ACETAMINOPHEN
     Indication: Supportive care
     Dosage: 1000 MG, 1X; IN TOTAL
     Route: 065
     Dates: start: 20230524, end: 20230524
  149. ACETAMINOPHEN [Concomitant]
     Active Substance: ACETAMINOPHEN
     Dosage: 1000 MG, QD
     Route: 065
     Dates: start: 20230320, end: 20230320
  150. ACETAMINOPHEN [Concomitant]
     Active Substance: ACETAMINOPHEN
     Dosage: 1000 MG, TWICE PER CYCLE
     Route: 065
     Dates: start: 20230621, end: 20230705
  151. ACETAMINOPHEN [Concomitant]
     Active Substance: ACETAMINOPHEN
     Dosage: 10 MG, QD
     Route: 065
     Dates: start: 20230412, end: 20230412
  152. ACETAMINOPHEN [Concomitant]
     Active Substance: ACETAMINOPHEN
     Dosage: 1000 MG, CYCLICAL
     Route: 065
     Dates: start: 20221115, end: 20221115
  153. ACETAMINOPHEN [Concomitant]
     Active Substance: ACETAMINOPHEN
     Dosage: 1000 MG CYCLICAL
     Route: 065
     Dates: start: 20221012, end: 20221012
  154. ACETAMINOPHEN [Concomitant]
     Active Substance: ACETAMINOPHEN
     Dosage: 1000 MG, QD
     Route: 065
     Dates: start: 20230306, end: 20230306
  155. ACETAMINOPHEN [Concomitant]
     Active Substance: ACETAMINOPHEN
     Dosage: 1000 MG, QD
     Route: 065
     Dates: start: 20221227, end: 20221227
  156. ACETAMINOPHEN [Concomitant]
     Active Substance: ACETAMINOPHEN
     Dosage: 1000 MG, 1X; IN TOTAL
     Route: 065
     Dates: start: 20230607, end: 20230607
  157. ACETAMINOPHEN [Concomitant]
     Active Substance: ACETAMINOPHEN
     Dosage: UNK; ;
     Route: 065
     Dates: start: 2020
  158. ACETAMINOPHEN [Concomitant]
     Active Substance: ACETAMINOPHEN
     Dosage: 1000 MG CYCLICAL
     Route: 065
     Dates: start: 20221213, end: 20221213
  159. ACETAMINOPHEN [Concomitant]
     Active Substance: ACETAMINOPHEN
     Dosage: 1000 MG, 1X; IN TOTAL
     Route: 065
     Dates: start: 20230726, end: 20230726
  160. ACETAMINOPHEN [Concomitant]
     Active Substance: ACETAMINOPHEN
     Dosage: 1000 MG, QD
     Route: 065
     Dates: start: 20230109, end: 20230109
  161. ACETAMINOPHEN [Concomitant]
     Active Substance: ACETAMINOPHEN
     Dosage: UNK UNK, QCY; CYCLICAL ;
     Route: 065
     Dates: start: 20221227, end: 20221227
  162. ACETAMINOPHEN [Concomitant]
     Active Substance: ACETAMINOPHEN
     Dosage: UNK, QCY; CYCLICAL ;
     Route: 065
     Dates: start: 20230123, end: 20230123
  163. ACETAMINOPHEN [Concomitant]
     Active Substance: ACETAMINOPHEN
     Dosage: 1000 MG CYCLICAL
     Route: 065
     Dates: start: 20221019, end: 20221019
  164. ACETAMINOPHEN [Concomitant]
     Active Substance: ACETAMINOPHEN
     Dosage: UNK, QCY; CYCLICAL ;
     Route: 065
     Dates: start: 20230109, end: 20230109
  165. ACETAMINOPHEN [Concomitant]
     Active Substance: ACETAMINOPHEN
     Dosage: UNK, QCY; CYCLICAL ;
     Route: 065
     Dates: start: 20230621, end: 20230621
  166. ACETAMINOPHEN [Concomitant]
     Active Substance: ACETAMINOPHEN
     Dosage: UNK, QCY; CYCLICAL ;
     Route: 065
     Dates: start: 20230607, end: 20230607
  167. ACETAMINOPHEN [Concomitant]
     Active Substance: ACETAMINOPHEN
     Dosage: UNK UNK, QCY; CYCLICAL ;
     Route: 065
     Dates: start: 20230412, end: 20230412
  168. ACETAMINOPHEN [Concomitant]
     Active Substance: ACETAMINOPHEN
     Dosage: UNK UNK, QCY; CYCLICAL ;
     Route: 065
     Dates: start: 20230726, end: 20230726
  169. ACETAMINOPHEN [Concomitant]
     Active Substance: ACETAMINOPHEN
     Dosage: UNK UNK, QCY; CYCLICAL ;
     Route: 065
     Dates: start: 20230320, end: 20230320
  170. ACETAMINOPHEN [Concomitant]
     Active Substance: ACETAMINOPHEN
     Dosage: 1000 MG CYCLICAL
     Route: 065
     Dates: start: 20221102, end: 20221102
  171. ACETAMINOPHEN [Concomitant]
     Active Substance: ACETAMINOPHEN
     Dosage: UNK, QCY; CYCLICAL ;
     Route: 065
     Dates: start: 20230510, end: 20230510
  172. ACETAMINOPHEN [Concomitant]
     Active Substance: ACETAMINOPHEN
     Dosage: UNK, QCY; CYCLICAL ;
     Route: 065
     Dates: start: 20230206, end: 20230206
  173. ACETAMINOPHEN [Concomitant]
     Active Substance: ACETAMINOPHEN
     Dosage: UNK, QCY; CYCLICAL ;
     Route: 065
     Dates: start: 20230306, end: 20230306
  174. ACETAMINOPHEN [Concomitant]
     Active Substance: ACETAMINOPHEN
     Dosage: 1000 MG, QD, EVERY CYCLE
     Route: 065
     Dates: start: 20221213, end: 20221213
  175. ACETAMINOPHEN [Concomitant]
     Active Substance: ACETAMINOPHEN
     Dosage: UNK, QCY; CYCLICAL ;
     Route: 065
     Dates: start: 20230705, end: 20230705
  176. ACETAMINOPHEN [Concomitant]
     Active Substance: ACETAMINOPHEN
     Dosage: UNK, QCY; CYCLICAL ;
     Route: 065
     Dates: start: 20230524, end: 20230524
  177. ACETAMINOPHEN [Concomitant]
     Active Substance: ACETAMINOPHEN
     Dosage: 1000 MG CYCLICAL
     Route: 065
     Dates: start: 20221026, end: 20221026
  178. PREGABALIN [Concomitant]
     Active Substance: PREGABALIN
     Indication: Neuropathy peripheral
     Dosage: UNK; ;
     Route: 065
     Dates: start: 2020
  179. PREGABALIN [Concomitant]
     Active Substance: PREGABALIN
     Dosage: UNK; ;
     Route: 065
     Dates: start: 2018
  180. RIVAROXABAN [Concomitant]
     Active Substance: RIVAROXABAN
     Indication: Thrombosis prophylaxis
     Dosage: 10 MG, QD
     Route: 065
     Dates: start: 20230306, end: 20230403
  181. RIVAROXABAN [Concomitant]
     Active Substance: RIVAROXABAN
     Dosage: 10 MG, QD
     Route: 065
     Dates: start: 20230206, end: 20230306
  182. RIVAROXABAN [Concomitant]
     Active Substance: RIVAROXABAN
     Dosage: 10 MG, QD
     Route: 065
     Dates: start: 20221012, end: 20221109
  183. RIVAROXABAN [Concomitant]
     Active Substance: RIVAROXABAN
     Dosage: UNK; ;
     Route: 065
     Dates: start: 2020
  184. RIVAROXABAN [Concomitant]
     Active Substance: RIVAROXABAN
     Dosage: 10 MG, QD
     Route: 065
     Dates: start: 20230109, end: 20230206
  185. RIVAROXABAN [Concomitant]
     Active Substance: RIVAROXABAN
     Dosage: 10 MG, QD
     Route: 065
     Dates: start: 20230524, end: 20230621
  186. RIVAROXABAN [Concomitant]
     Active Substance: RIVAROXABAN
     Dosage: 10 MG, QD
     Route: 065
     Dates: start: 20230412, end: 20230510
  187. RIVAROXABAN [Concomitant]
     Active Substance: RIVAROXABAN
     Dosage: 10 MG, QD
     Route: 065
     Dates: start: 20221115, end: 20221213
  188. RIVAROXABAN [Concomitant]
     Active Substance: RIVAROXABAN
     Dosage: 10 MG, QD
     Route: 065
     Dates: start: 20230109, end: 20230206
  189. SODIUM BICARBONATE [Concomitant]
     Active Substance: SODIUM BICARBONATE
     Indication: Chronic kidney disease
     Dosage: UNK; ;
     Route: 065
     Dates: start: 2020
  190. SODIUM BICARBONATE [Concomitant]
     Active Substance: SODIUM BICARBONATE
     Dosage: UNK; ;
     Route: 065
     Dates: start: 20230418
  191. TAMSULOSIN [Concomitant]
     Active Substance: TAMSULOSIN
     Indication: Benign prostatic hyperplasia
     Dosage: UNK; ;
     Route: 065
     Dates: start: 20230418
  192. TAMSULOSIN [Concomitant]
     Active Substance: TAMSULOSIN
     Indication: Benign prostatic hyperplasia
     Dosage: UNK; ;
     Route: 065
     Dates: start: 2020
  193. CALCIUM\VITAMIN D [Concomitant]
     Active Substance: CALCIUM\VITAMIN D
     Indication: Supportive care
     Dosage: 1 DOSAGE FORM
     Route: 065
     Dates: start: 20221115, end: 20230206
  194. DEXAMETHASONE [Concomitant]
     Active Substance: DEXAMETHASONE
     Indication: Supportive care
     Dosage: UNK UNK, QCY; CYCLICAL ;
     Route: 065
     Dates: start: 20230510, end: 20230510
  195. DEXAMETHASONE [Concomitant]
     Active Substance: DEXAMETHASONE
     Dosage: UNK UNK, QCY; CYCLICAL ;
     Route: 065
     Dates: start: 20230206, end: 20230206
  196. DEXAMETHASONE [Concomitant]
     Active Substance: DEXAMETHASONE
     Dosage: UNK UNK, QCY; CYCLICAL ;
     Route: 065
     Dates: start: 20230607, end: 20230607
  197. DEXAMETHASONE [Concomitant]
     Active Substance: DEXAMETHASONE
     Dosage: 20 MG CYCLICAL
     Route: 065
     Dates: start: 20221026, end: 20221026
  198. DEXAMETHASONE [Concomitant]
     Active Substance: DEXAMETHASONE
     Dosage: 20 MG CYCLICAL
     Route: 065
     Dates: start: 20221019, end: 20221019
  199. DEXAMETHASONE [Concomitant]
     Active Substance: DEXAMETHASONE
     Dosage: UNK UNK, QCY; CYCLICAL ;
     Route: 065
     Dates: start: 20230823, end: 20230823
  200. DEXAMETHASONE [Concomitant]
     Active Substance: DEXAMETHASONE
     Dosage: UNK UNK, QCY; CYCLICAL ;
     Route: 065
     Dates: start: 20230109, end: 20230109
  201. DEXAMETHASONE [Concomitant]
     Active Substance: DEXAMETHASONE
     Dosage: 20 MG CYCLICAL
     Route: 065
     Dates: start: 20221102, end: 20221102
  202. DEXAMETHASONE [Concomitant]
     Active Substance: DEXAMETHASONE
     Dosage: UNK UNK, QCY; CYCLICAL ;
     Route: 065
     Dates: start: 20230621, end: 20230621
  203. DEXAMETHASONE [Concomitant]
     Active Substance: DEXAMETHASONE
     Dosage: UNK UNK, QCY; CYCLICAL ;
     Route: 065
     Dates: start: 20230524, end: 20230524
  204. DEXAMETHASONE [Concomitant]
     Active Substance: DEXAMETHASONE
     Dosage: 20 MG CYCLICAL
     Route: 065
     Dates: start: 20221213, end: 20221213
  205. DEXAMETHASONE [Concomitant]
     Active Substance: DEXAMETHASONE
     Dosage: UNK UNK, QCY; CYCLICAL ;
     Route: 065
     Dates: start: 20230412, end: 20230412
  206. DEXAMETHASONE [Concomitant]
     Active Substance: DEXAMETHASONE
     Dosage: UNK UNK, QCY; CYCLICAL ;
     Route: 065
     Dates: start: 20221227, end: 20221227
  207. DEXAMETHASONE [Concomitant]
     Active Substance: DEXAMETHASONE
     Dosage: UNK UNK, QCY; CYCLICAL ;
     Route: 065
     Dates: start: 20230306, end: 20230306
  208. DEXAMETHASONE [Concomitant]
     Active Substance: DEXAMETHASONE
     Dosage: UNK UNK, QCY; CYCLICAL ;
     Route: 065
     Dates: start: 20230705, end: 20230705
  209. DEXAMETHASONE [Concomitant]
     Active Substance: DEXAMETHASONE
     Dosage: UNK UNK, QCY; CYCLICAL ;
     Route: 065
     Dates: start: 20230123, end: 20230123
  210. DEXAMETHASONE [Concomitant]
     Active Substance: DEXAMETHASONE
     Dosage: UNK UNK, QCY; CYCLICAL ;
     Route: 065
     Dates: start: 20230320, end: 20230320
  211. DEXAMETHASONE [Concomitant]
     Active Substance: DEXAMETHASONE
     Dosage: UNK UNK, QCY; CYCLICAL ;
     Route: 065
     Dates: start: 20230220, end: 20230220
  212. DEXAMETHASONE [Concomitant]
     Active Substance: DEXAMETHASONE
     Dosage: 20 MG CYCLICAL
     Route: 065
     Dates: start: 20221012, end: 20221012
  213. DEXAMETHASONE [Concomitant]
     Active Substance: DEXAMETHASONE
     Dosage: 20 MG CYCLICAL
     Route: 065
     Dates: start: 20221115, end: 20221115

REACTIONS (5)
  - Hyperglycaemia [Recovered/Resolved with Sequelae]
  - Acute kidney injury [Recovered/Resolved]
  - Neutropenia [Recovered/Resolved]
  - Ejection fraction decreased [Not Recovered/Not Resolved]
  - Muscle spasms [Not Recovered/Not Resolved]

NARRATIVE: CASE EVENT DATE: 20221107
